FAERS Safety Report 7778191 (Version 7)
Quarter: 2012Q4

REPORT INFORMATION
  Report Type: 
  Country: US (occurrence: US)
  Receive Date: 20110128
  Receipt Date: 20121018
  Transmission Date: 20130627
  Serious: Yes (Other)
  Sender: FDA-Public Use
  Company Number: US-BAYER-2010-006887

PATIENT
  Age: 28 Year
  Sex: Female
  Weight: 108.84 kg

DRUGS (48)
  1. MAGNEVIST [Suspect]
     Indication: NUCLEAR MAGNETIC RESONANCE IMAGING ABDOMINAL
     Dosage: Daily dose 20 ml
     Dates: start: 20070905, end: 20070905
  2. MAGNEVIST [Suspect]
     Indication: NUCLEAR MAGNETIC RESONANCE IMAGING
     Dosage: UNK
     Dates: start: 20041001
  3. MAGNEVIST [Suspect]
     Indication: NUCLEAR MAGNETIC RESONANCE IMAGING ABDOMINAL
     Dosage: UNK
     Dates: start: 20041007
  4. MAGNEVIST [Suspect]
     Indication: NUCLEAR MAGNETIC RESONANCE IMAGING ABDOMINAL
     Dosage: UNK
     Dates: start: 20041118
  5. MAGNEVIST [Suspect]
     Indication: NUCLEAR MAGNETIC RESONANCE IMAGING ABDOMINAL
     Dosage: UNK
     Dates: start: 20050509
  6. MAGNEVIST [Suspect]
     Indication: NUCLEAR MAGNETIC RESONANCE IMAGING ABDOMINAL
     Dosage: UNK
     Dates: start: 20050523
  7. MAGNEVIST [Suspect]
     Indication: NUCLEAR MAGNETIC RESONANCE IMAGING ABDOMINAL
     Dosage: UNK
     Dates: start: 20050526
  8. GADOLINIUM IN [Suspect]
     Indication: NUCLEAR MAGNETIC RESONANCE IMAGING BRAIN
     Dosage: UNK
     Dates: start: 20050505, end: 20050505
  9. GADOLINIUM IN [Suspect]
     Indication: MENTAL STATUS CHANGES
     Dosage: UNK
     Dates: start: 20050603, end: 20050603
  10. GADOLINIUM IN [Suspect]
     Indication: NUCLEAR MAGNETIC RESONANCE IMAGING
  11. GADOLINIUM IN [Suspect]
     Indication: PAIN IN EXTREMITY
  12. GADOLINIUM IN [Suspect]
     Indication: ERYTHEMA
  13. OMNIPAQUE [Suspect]
     Indication: COMPUTERISED TOMOGRAM ABDOMEN
     Dosage: 150 ml, UNK
     Dates: start: 20040930, end: 20040930
  14. DIATRIZOATE MEGLUMINE [Suspect]
     Indication: COMPUTERISED TOMOGRAM ABDOMEN
     Dosage: UNK
     Route: 048
     Dates: start: 20041006, end: 20041006
  15. OMNISCAN [Suspect]
  16. OPTIMARK [Suspect]
  17. MULTIHANCE [Suspect]
  18. PROHANCE [Suspect]
  19. CONTRAST MEDIA [Concomitant]
     Indication: COMPUTERISED TOMOGRAM HEAD
     Dosage: UNK
     Route: 042
     Dates: start: 20041012, end: 20041012
  20. CONTRAST MEDIA [Concomitant]
     Indication: COMPUTERISED TOMOGRAM ABDOMEN
     Dosage: UNK
     Route: 048
     Dates: start: 20050506, end: 20050506
  21. CONTRAST MEDIA [Concomitant]
     Indication: COMPUTERISED TOMOGRAM HEAD
     Dosage: UNK
     Route: 042
     Dates: start: 20050506, end: 20050506
  22. CYTOXAN [Concomitant]
  23. IMMUNOGLOBULIN [Concomitant]
     Route: 042
  24. LOPRESSOR [Concomitant]
  25. COUMADIN [Concomitant]
  26. LISINOPRIL [Concomitant]
  27. IRON [Concomitant]
  28. ASPIRIN [Concomitant]
  29. NORVASC [Concomitant]
  30. EPOGEN [Concomitant]
  31. CELLCEPT [Concomitant]
  32. PREDNISONE [Concomitant]
  33. GENGRAF [Concomitant]
  34. XANAX [Concomitant]
  35. CYCLOBENZAPRINE [Concomitant]
  36. GABAPENTIN [Concomitant]
  37. LASIX [Concomitant]
  38. VALCYTE [Concomitant]
  39. CANNABIS SATIVA SUBSP. INDICA TOP [Concomitant]
  40. MIDODRINE [Concomitant]
  41. SENSIPAR [Concomitant]
  42. RENAGEL [SEVELAMER] [Concomitant]
  43. FERROUS SULFATE [Concomitant]
     Dosage: 325 mg, BID
     Route: 048
  44. CALCIUM +VIT D [Concomitant]
     Dosage: 1 DF, BID
  45. NEPHROVITE [VIT C,VIT H,B5,B12,B9,B3,B6,B2,B1 HCL] [Concomitant]
  46. CYCLOSPORINE [Concomitant]
     Dosage: 25 mg, UNK
     Route: 048
  47. MULTIVITAMIN [Concomitant]
     Dosage: 1 tablet daily
     Route: 048
  48. FOLBEE PLUS [Concomitant]
     Dosage: 1 tablet daily
     Route: 048

REACTIONS (38)
  - Nephrogenic systemic fibrosis [Unknown]
  - Oedema peripheral [Unknown]
  - Scar [Unknown]
  - Rash erythematous [Unknown]
  - Joint stiffness [Unknown]
  - Arthralgia [Unknown]
  - Erythema [Unknown]
  - Musculoskeletal pain [Unknown]
  - Pain in extremity [Unknown]
  - Skin disorder [Unknown]
  - Soft tissue disorder [Unknown]
  - Upper extremity mass [Unknown]
  - Skin hyperpigmentation [Unknown]
  - Rash papular [Unknown]
  - Burning sensation [Unknown]
  - Skin induration [Unknown]
  - Limb discomfort [Unknown]
  - Oedema [Unknown]
  - Skin hypertrophy [Unknown]
  - Injury [Unknown]
  - Musculoskeletal stiffness [Unknown]
  - Dysstasia [Unknown]
  - Myosclerosis [Unknown]
  - Pain [Unknown]
  - Muscle fatigue [Unknown]
  - Joint range of motion decreased [Unknown]
  - Skin tightness [Unknown]
  - Skin fibrosis [Unknown]
  - Balance disorder [Unknown]
  - Skin discolouration [Unknown]
  - Renal failure acute [None]
  - Renal tubular necrosis [None]
  - Proteinuria [None]
  - Renal failure chronic [Unknown]
  - Renal cortical necrosis [None]
  - Anxiety [None]
  - Emotional distress [None]
  - Stress [None]
